FAERS Safety Report 20344472 (Version 1)
Quarter: 2022Q1

REPORT INFORMATION
  Report Type: Spontaneous
  Country: US (occurrence: US)
  Receive Date: 20220118
  Receipt Date: 20220118
  Transmission Date: 20220424
  Serious: Yes (Other)
  Sender: FDA-Public Use
  Company Number: US-GLAXOSMITHKLINE-US2022GSK007895

PATIENT
  Sex: Male

DRUGS (8)
  1. RANITIDINE HYDROCHLORIDE [Suspect]
     Active Substance: RANITIDINE HYDROCHLORIDE
     Indication: Dyspepsia
     Dosage: 75 MG, OCCASIONAL
     Route: 065
     Dates: start: 198001, end: 201901
  2. RANITIDINE HYDROCHLORIDE [Suspect]
     Active Substance: RANITIDINE HYDROCHLORIDE
     Dosage: 150 MG, OCCASIONAL
     Route: 065
     Dates: start: 198001, end: 201901
  3. RANITIDINE HYDROCHLORIDE [Suspect]
     Active Substance: RANITIDINE HYDROCHLORIDE
     Indication: Dyspepsia
     Dosage: 75 MG, OCCASIONAL
     Route: 065
     Dates: start: 198001, end: 201901
  4. RANITIDINE HYDROCHLORIDE [Suspect]
     Active Substance: RANITIDINE HYDROCHLORIDE
     Dosage: 150 MG, OCCASIONAL
     Route: 065
     Dates: start: 198001, end: 201901
  5. RANITIDINE [Suspect]
     Active Substance: RANITIDINE
     Indication: Dyspepsia
     Dosage: 75 MG, OCCASIONAL
     Route: 065
     Dates: start: 198001, end: 201901
  6. RANITIDINE [Suspect]
     Active Substance: RANITIDINE
     Dosage: 150 MG, OCCASIONAL
     Route: 065
     Dates: start: 198001, end: 201901
  7. RANITIDINE [Suspect]
     Active Substance: RANITIDINE
     Indication: Dyspepsia
     Dosage: 75 MG, OCCASIONAL
     Route: 065
     Dates: start: 198001, end: 201901
  8. RANITIDINE [Suspect]
     Active Substance: RANITIDINE
     Dosage: 150 MG, OCCASIONAL
     Route: 065
     Dates: start: 198001, end: 201901

REACTIONS (1)
  - Renal cancer [Unknown]
